FAERS Safety Report 18409148 (Version 4)
Quarter: 2020Q4

REPORT INFORMATION
  Report Type: Spontaneous
  Country: US (occurrence: US)
  Receive Date: 20201021
  Receipt Date: 20201211
  Transmission Date: 20210114
  Serious: Yes (Hospitalization)
  Sender: FDA-Public Use
  Company Number: US-HORIZON-2020HZN00177

PATIENT
  Age: 64 Year
  Sex: Male

DRUGS (7)
  1. BUPROPION. [Concomitant]
     Active Substance: BUPROPION
  2. METHIMAZOLE. [Concomitant]
     Active Substance: METHIMAZOLE
  3. DEXILANT [Concomitant]
     Active Substance: DEXLANSOPRAZOLE
  4. BUSPIRONE [Concomitant]
     Active Substance: BUSPIRONE HYDROCHLORIDE
  5. TEPEZZA [Suspect]
     Active Substance: TEPROTUMUMAB-TRBW
     Indication: ENDOCRINE OPHTHALMOPATHY
     Dosage: 20MG/KG EVERY 3 WEEKS
     Dates: start: 20200828, end: 20201009
  6. HALDOL [Concomitant]
     Active Substance: HALOPERIDOL
  7. THIAMINE. [Concomitant]
     Active Substance: THIAMINE

REACTIONS (3)
  - Anxiety [Unknown]
  - Delirium [Recovered/Resolved]
  - Vitamin B1 decreased [Unknown]

NARRATIVE: CASE EVENT DATE: 20201012
